FAERS Safety Report 26110489 (Version 1)
Quarter: 2025Q4

REPORT INFORMATION
  Report Type: Spontaneous
  Country: GB (occurrence: GB)
  Receive Date: 20251202
  Receipt Date: 20251202
  Transmission Date: 20260118
  Serious: Yes (Other)
  Sender: MSN LABORATORIES PRIVATE LIMITED
  Company Number: None

PATIENT

DRUGS (2)
  1. ATORVASTATIN [Suspect]
     Active Substance: ATORVASTATIN
     Indication: Peripheral arterial occlusive disease
     Dosage: 80MG ONCE A NIGHT
     Route: 065
     Dates: start: 20241104, end: 20250701
  2. CLOPIDOGREL BISULFATE [Concomitant]
     Active Substance: CLOPIDOGREL BISULFATE
     Indication: Peripheral arterial occlusive disease
     Route: 065
     Dates: start: 20250104

REACTIONS (5)
  - Medication error [Unknown]
  - Myalgia [Recovering/Resolving]
  - Bursitis [Unknown]
  - Anxiety [Unknown]
  - Pain in extremity [Unknown]

NARRATIVE: CASE EVENT DATE: 20241204
